FAERS Safety Report 13695431 (Version 10)
Quarter: 2019Q2

REPORT INFORMATION
  Report Type: Report from Study
  Country: US (occurrence: US)
  Receive Date: 20170627
  Receipt Date: 20190515
  Transmission Date: 20190711
  Serious: Yes (Hospitalization)
  Sender: FDA-Public Use
  Company Number: US-ACTELION-A-NJ2017-151269

PATIENT
  Age: 34 Year
  Sex: Female
  Weight: 123.81 kg

DRUGS (11)
  1. SPIRONOLACTONE. [Concomitant]
     Active Substance: SPIRONOLACTONE
     Dosage: 50 MG, QD
  2. UPTRAVI [Suspect]
     Active Substance: SELEXIPAG
     Indication: PULMONARY ARTERIAL HYPERTENSION
     Dosage: 200 MCG, BID
     Route: 048
     Dates: start: 20170329, end: 201706
  3. UPTRAVI [Suspect]
     Active Substance: SELEXIPAG
     Dosage: 800 MCG, BID
     Route: 048
     Dates: start: 20170707
  4. AMBRISENTAN [Suspect]
     Active Substance: AMBRISENTAN
     Indication: PULMONARY ARTERIAL HYPERTENSION
     Dosage: 10 MG, UNK
     Route: 065
     Dates: start: 20170330
  5. TYVASO [Concomitant]
     Active Substance: TREPROSTINIL
     Dosage: 5 BREATHS
     Route: 065
     Dates: start: 20170622
  6. UPTRAVI [Suspect]
     Active Substance: SELEXIPAG
     Dosage: 400 MCG, BID
     Route: 048
     Dates: start: 20170324, end: 20170328
  7. TORSEMIDE. [Concomitant]
     Active Substance: TORSEMIDE
     Dosage: 20 MG, QD
  8. TRACLEER [Suspect]
     Active Substance: BOSENTAN
     Indication: PULMONARY ARTERIAL HYPERTENSION
     Dosage: 125 MG, BID
     Route: 048
     Dates: start: 20140318
  9. SILDENAFIL. [Concomitant]
     Active Substance: SILDENAFIL
     Dosage: 80 MG, TID
  10. UPTRAVI [Suspect]
     Active Substance: SELEXIPAG
     Dosage: 200 MCG, BID
     Route: 048
     Dates: start: 20170317, end: 20170323
  11. DIAMOX SEQUELS [Concomitant]
     Active Substance: ACETAZOLAMIDE
     Dosage: 500 MG, BID

REACTIONS (28)
  - Swelling [Recovered/Resolved]
  - Fluid overload [Recovered/Resolved]
  - Fluid retention [Unknown]
  - Pleurisy [Unknown]
  - Pneumonia [Recovered/Resolved]
  - Vomiting [Unknown]
  - Flushing [Unknown]
  - Drug intolerance [Unknown]
  - Pain in extremity [Recovering/Resolving]
  - Hypoxia [Recovered/Resolved]
  - Pulmonary arterial hypertension [Unknown]
  - Condition aggravated [Recovered/Resolved]
  - Pulmonary pain [Recovered/Resolved]
  - Headache [Unknown]
  - Upper respiratory tract infection [Unknown]
  - Cough [Recovered/Resolved]
  - Loss of consciousness [Recovered/Resolved]
  - Haemoptysis [Recovered/Resolved]
  - Chest pain [Unknown]
  - Epistaxis [Unknown]
  - Dyspnoea [Unknown]
  - Oedema [Unknown]
  - Cardiac failure chronic [Recovering/Resolving]
  - Nausea [Recovered/Resolved]
  - Dizziness [Recovered/Resolved]
  - Diet noncompliance [Unknown]
  - Myalgia [Recovering/Resolving]
  - Oxygen consumption increased [Recovered/Resolved]

NARRATIVE: CASE EVENT DATE: 20170324
